FAERS Safety Report 5903447-7 (Version None)
Quarter: 2008Q3

REPORT INFORMATION
  Report Type: 
  Country: None (occurrence: None)
  Receive Date: 20080930
  Receipt Date: 20080808
  Transmission Date: 20090109
  Serious: Yes (Other)
  Sender: FDA-Public Use
  Company Number: US-PURDUE-USA_2008_0034711

PATIENT
  Sex: Male
  Weight: 102 kg

DRUGS (3)
  1. OXYCONTIN [Suspect]
     Indication: PAIN
     Dosage: 20 MG, BID
     Dates: start: 19990101, end: 20000101
  2. LOTREL                             /01621601/ [Concomitant]
     Indication: HYPERTENSION
  3. ATENOLOL [Concomitant]
     Indication: HYPERTENSION

REACTIONS (2)
  - DRUG DEPENDENCE [None]
  - MYOCARDIAL INFARCTION [None]
